FAERS Safety Report 18644717 (Version 1)
Quarter: 2020Q4

REPORT INFORMATION
  Report Type: Spontaneous
  Country: US (occurrence: US)
  Receive Date: 20201221
  Receipt Date: 20201221
  Transmission Date: 20210114
  Serious: No
  Sender: FDA-Public Use
  Company Number: US-BIOHAVEN PHARMACEUTICALS-2020BHV00796

PATIENT
  Age: 61 Year
  Sex: Female

DRUGS (5)
  1. PEPCID AC [Concomitant]
     Active Substance: FAMOTIDINE
  2. NURTEC ODT [Suspect]
     Active Substance: RIMEGEPANT SULFATE
     Dosage: 75 MG, AS NEEDED
     Route: 048
     Dates: start: 202009, end: 2020
  3. LEVOTHYROXINE. [Concomitant]
     Active Substance: LEVOTHYROXINE
  4. PROPRANOLOL [Concomitant]
     Active Substance: PROPRANOLOL HYDROCHLORIDE
  5. NURTEC ODT [Suspect]
     Active Substance: RIMEGEPANT SULFATE
     Indication: MIGRAINE
     Dosage: 75 MG, AS NEEDED
     Route: 048
     Dates: start: 202006, end: 202009

REACTIONS (4)
  - Therapeutic product effect variable [Recovered/Resolved]
  - Migraine [Unknown]
  - Medication overuse headache [Unknown]
  - Reaction to food additive [Unknown]

NARRATIVE: CASE EVENT DATE: 2020
